FAERS Safety Report 22917271 (Version 2)
Quarter: 2023Q4

REPORT INFORMATION
  Report Type: Report from Study
  Country: US (occurrence: US)
  Receive Date: 20230907
  Receipt Date: 20231220
  Transmission Date: 20240110
  Serious: Yes (Hospitalization, Other)
  Sender: FDA-Public Use
  Company Number: US-ABBVIE-5396426

PATIENT
  Sex: Female

DRUGS (3)
  1. RINVOQ [Suspect]
     Active Substance: UPADACITINIB
     Indication: Rheumatoid arthritis
     Dosage: FORM STRENGTH: 15 MG
     Route: 048
     Dates: start: 202306, end: 202307
  2. RINVOQ [Suspect]
     Active Substance: UPADACITINIB
     Indication: Rheumatoid arthritis
     Dosage: FORM STRENGTH: 15 MG?2 TABLETS
     Route: 048
     Dates: start: 202308, end: 202308
  3. RINVOQ [Suspect]
     Active Substance: UPADACITINIB
     Indication: Rheumatoid arthritis
     Dosage: FORM STRENGTH: 15 MG
     Route: 048
     Dates: start: 202308

REACTIONS (7)
  - Streptococcal infection [Recovered/Resolved]
  - Night sweats [Unknown]
  - Staphylococcal infection [Unknown]
  - Rheumatoid arthritis [Unknown]
  - Gait inability [Unknown]
  - Staphylococcal sepsis [Unknown]
  - Staphylococcal infection [Unknown]

NARRATIVE: CASE EVENT DATE: 20230101
